FAERS Safety Report 9013334 (Version 1)
Quarter: 2013Q1

REPORT INFORMATION
  Report Type: Spontaneous
  Country: US (occurrence: None)
  Receive Date: 20130107
  Receipt Date: 20130107
  Transmission Date: 20140127
  Serious: Yes (Other)
  Sender: FDA-Public Use
  Company Number: None

PATIENT
  Age: 66 Year
  Sex: Female
  Weight: 51.4 kg

DRUGS (2)
  1. LAPATINIB [Suspect]
     Route: 048
     Dates: start: 20121219, end: 20121228
  2. TRASTUZUMAB [Suspect]
     Route: 042
     Dates: start: 20121219, end: 20121219

REACTIONS (2)
  - Rash maculo-papular [None]
  - Pyrexia [None]
